FAERS Safety Report 13693567 (Version 2)
Quarter: 2017Q3

REPORT INFORMATION
  Report Type: Spontaneous
  Country: IT (occurrence: IT)
  Receive Date: 20170627
  Receipt Date: 20170808
  Transmission Date: 20171127
  Serious: Yes (Death)
  Sender: FDA-Public Use
  Company Number: IT-SA-2017SA112858

PATIENT
  Age: 58 Year
  Sex: Male

DRUGS (3)
  1. NINTEDANIB ESILATE [Suspect]
     Active Substance: NINTEDANIB ESYLATE
     Indication: LUNG ADENOCARCINOMA
     Route: 048
     Dates: start: 20170529, end: 20170601
  2. DOCETAXEL. [Suspect]
     Active Substance: DOCETAXEL
     Indication: LUNG ADENOCARCINOMA
     Route: 042
     Dates: start: 20170526, end: 20170526
  3. DISSENTEN [Concomitant]
     Active Substance: LOPERAMIDE HYDROCHLORIDE
     Dosage: DOSE:4 UNIT(S)
     Route: 048
     Dates: start: 20170601, end: 20170601

REACTIONS (3)
  - Diarrhoea [Fatal]
  - Oliguria [Fatal]
  - Neutropenia [Fatal]

NARRATIVE: CASE EVENT DATE: 20170601
